FAERS Safety Report 8089953-0 (Version None)
Quarter: 2012Q1

REPORT INFORMATION
  Report Type: 
  Country: None (occurrence: None)
  Receive Date: 20120129
  Receipt Date: 20110922
  Transmission Date: 20120608
  Serious: No
  Sender: FDA-Public Use
  Company Number: US-ABBOTT-11P-163-0857251-00

PATIENT
  Age: 52 Year
  Sex: Female

DRUGS (12)
  1. LEXAPRO [Concomitant]
     Indication: ANXIETY
     Dosage: DAILY
     Route: 048
  2. SYNTHROID [Concomitant]
     Indication: THYROIDECTOMY
     Dosage: DAILY
     Route: 048
  3. HUMIRA [Suspect]
  4. METHOTREXATE [Concomitant]
     Indication: PRODUCT USED FOR UNKNOWN INDICATION
  5. CELEBREX [Concomitant]
     Indication: PAIN
     Route: 048
  6. TRICOR [Concomitant]
     Indication: BLOOD TRIGLYCERIDES
     Dosage: DAILY
     Route: 048
  7. HUMIRA [Suspect]
  8. BENICAR [Concomitant]
     Indication: HYPERTENSION
     Dosage: DAILY
     Route: 048
  9. ESTRACE [Concomitant]
     Indication: HORMONE REPLACEMENT THERAPY
     Dosage: DAILY
     Route: 048
  10. FOLIC ACID [Concomitant]
     Indication: PRODUCT USED FOR UNKNOWN INDICATION
     Dosage: DAILY
     Route: 048
  11. HUMIRA [Suspect]
     Indication: PSORIATIC ARTHROPATHY
     Dates: start: 20070101
  12. NEXIUM [Concomitant]
     Indication: PRODUCT USED FOR UNKNOWN INDICATION
     Dosage: DAILY
     Route: 048

REACTIONS (7)
  - FUNGAL INFECTION [None]
  - NASOPHARYNGITIS [None]
  - ARTHRALGIA [None]
  - BRONCHITIS [None]
  - PSORIASIS [None]
  - MALAISE [None]
  - SINUSITIS [None]
